FAERS Safety Report 9018426 (Version 2)
Quarter: 2013Q1

REPORT INFORMATION
  Report Type: Report from Study
  Country: US (occurrence: US)
  Receive Date: 20130118
  Receipt Date: 20130212
  Transmission Date: 20140127
  Serious: Yes (Death, Hospitalization)
  Sender: FDA-Public Use
  Company Number: US-ASTELLAS-2013US000607

PATIENT
  Age: 72 Year
  Sex: Male
  Weight: 59 kg

DRUGS (1)
  1. ERLOTINIB TABLET [Suspect]
     Indication: PANCREATIC CARCINOMA
     Dosage: 100 MG, UID/QD
     Route: 048
     Dates: start: 20121206, end: 20121218

REACTIONS (5)
  - Malignant neoplasm progression [Fatal]
  - Failure to thrive [Unknown]
  - Dehydration [Unknown]
  - Abdominal pain [Unknown]
  - Depression [Unknown]
